FAERS Safety Report 24087106 (Version 1)
Quarter: 2024Q3

REPORT INFORMATION
  Report Type: Spontaneous
  Country: US (occurrence: US)
  Receive Date: 20240713
  Receipt Date: 20240713
  Transmission Date: 20241016
  Serious: Yes (Other)
  Sender: AMGEN
  Company Number: US-AMGEN-USASP2024133964

PATIENT
  Age: 80 Year
  Sex: Female

DRUGS (3)
  1. NPLATE [Suspect]
     Active Substance: ROMIPLOSTIM
     Indication: Aplastic anaemia
     Dosage: 250 MICROGRAM, QWK
     Route: 058
     Dates: start: 20200731
  2. NPLATE [Suspect]
     Active Substance: ROMIPLOSTIM
     Dosage: 1000 MICROGRAM, QWK
     Route: 058
  3. CYCLOSPORINE [Concomitant]
     Active Substance: CYCLOSPORINE
     Dosage: 200 MILLIGRAM, QD

REACTIONS (3)
  - Platelet count decreased [Unknown]
  - Haemoglobin decreased [Unknown]
  - Therapy non-responder [Unknown]
